FAERS Safety Report 21081152 (Version 4)
Quarter: 2022Q3

REPORT INFORMATION
  Report Type: Report from Study
  Country: FR (occurrence: None)
  Receive Date: 20220714
  Receipt Date: 20220919
  Transmission Date: 20221027
  Serious: Yes (Hospitalization)
  Sender: FDA-Public Use
  Company Number: FR-ROCHE-3131083

PATIENT
  Age: 87 Year
  Sex: Male
  Weight: 76.3 kg

DRUGS (10)
  1. ATEZOLIZUMAB [Suspect]
     Active Substance: ATEZOLIZUMAB
     Indication: Bladder transitional cell carcinoma
     Dosage: CUMULATIVE DOSE SINCE THE FIRST ADMINISTER:3600 MG?DATE OF LAST ADMINISTER BEFORE EVENT: 07/JUN/2022
     Route: 041
     Dates: start: 20220425
  2. BCG VACCINE [Suspect]
     Active Substance: BCG VACCINE
     Indication: Bladder transitional cell carcinoma
     Dosage: LAST DOSE ON 10/JUN/2022, CUMMULATIVE DOSE: 300 ML
     Route: 065
     Dates: start: 20220425
  3. LOSARTAN [Concomitant]
     Active Substance: LOSARTAN
     Indication: Hypertension
     Route: 048
  4. RIVAROXABAN [Concomitant]
     Active Substance: RIVAROXABAN
     Indication: Atrial fibrillation
     Route: 048
  5. BISOPROLOL [Concomitant]
     Active Substance: BISOPROLOL
     Indication: Atrial fibrillation
     Route: 048
  6. INDACATEROL [Concomitant]
     Active Substance: INDACATEROL
     Indication: Chronic obstructive pulmonary disease
     Route: 048
  7. AMIODARONE [Concomitant]
     Active Substance: AMIODARONE
     Indication: Atrial fibrillation
     Route: 048
     Dates: start: 20220704
  8. FUROSEMIDE [Concomitant]
     Active Substance: FUROSEMIDE
     Indication: Atrial fibrillation
     Route: 048
     Dates: start: 20220714
  9. CANDESARTAN [Concomitant]
     Active Substance: CANDESARTAN
     Indication: Hypertension
     Route: 048
     Dates: start: 20220719
  10. METOPROLOL [Concomitant]
     Active Substance: METOPROLOL
     Indication: Atrial fibrillation
     Route: 048
     Dates: start: 20220705

REACTIONS (3)
  - Atrial fibrillation [Recovered/Resolved]
  - Cardiac failure [Recovered/Resolved]
  - General physical health deterioration [Recovered/Resolved]

NARRATIVE: CASE EVENT DATE: 20220627
